FAERS Safety Report 5792717-1 (Version None)
Quarter: 2008Q2

REPORT INFORMATION
  Report Type: 
  Country: None (occurrence: None)
  Receive Date: 20080624
  Receipt Date: 20080407
  Transmission Date: 20081010
  Serious: Yes (Hospitalization)
  Sender: FDA-Public Use
  Company Number: CHPA2008US09804

PATIENT
  Age: 62 Year
  Sex: Male

DRUGS (9)
  1. ACETYLSALICYLIC ACID (NCH) (ACETYLSALICYLIC ACID) UNKNOWN [Suspect]
     Dosage: 325 MG, QD, ORAL; 325 MG, QD, ORAL
     Route: 048
  2. CLOPIDOGREL [Suspect]
     Dosage: 75 MG, QD, ORAL; 600 MG, ONCE/SINGLE; 75 MG, QD, ORAL
     Route: 048
  3. METOPROLOL SUCCINATE [Concomitant]
  4. PRAVASTATIN [Concomitant]
  5. ISOSORBIDE (ISOSORBIDE) [Concomitant]
  6. PREDNISONE TAB [Concomitant]
  7. METHOTREXATE [Concomitant]
  8. HYDROXYCHLOROQUINE SULFATE [Concomitant]
  9. PANTOPRAZOLE SODIUM [Concomitant]

REACTIONS (3)
  - ANGINA PECTORIS [None]
  - STENT PLACEMENT [None]
  - THROMBOSIS IN DEVICE [None]
